FAERS Safety Report 9002606 (Version 2)
Quarter: 2013Q1

REPORT INFORMATION
  Report Type: Spontaneous
  Country: US (occurrence: US)
  Receive Date: 20130107
  Receipt Date: 20130128
  Transmission Date: 20140127
  Serious: Yes (Other)
  Sender: FDA-Public Use
  Company Number: US-JNJFOC-20130100868

PATIENT
  Sex: Female

DRUGS (2)
  1. NUCYNTA [Suspect]
     Indication: PROCEDURAL PAIN
     Dosage: EVERY 3 HOURS
     Route: 048
     Dates: start: 201212
  2. NUCYNTA [Suspect]
     Indication: PROCEDURAL PAIN
     Dosage: EVERY 8 HOURS
     Route: 048

REACTIONS (2)
  - Drug dependence [Not Recovered/Not Resolved]
  - Inappropriate schedule of drug administration [Recovered/Resolved]
